FAERS Safety Report 9472092 (Version 13)
Quarter: 2015Q2

REPORT INFORMATION
  Report Type: Report from Study
  Country: CA (occurrence: CA)
  Receive Date: 20130823
  Receipt Date: 20150615
  Transmission Date: 20150821
  Serious: Yes (Other)
  Sender: FDA-Public Use
  Company Number: CA-ROCHE-1265052

PATIENT
  Age: 68 Year
  Sex: Male
  Weight: 79 kg

DRUGS (18)
  1. ACTEMRA [Suspect]
     Active Substance: TOCILIZUMAB
     Route: 042
     Dates: start: 20130917
  2. VITAMIN B3 [Concomitant]
     Active Substance: NIACIN
  3. GLIBENCLAMIDE [Concomitant]
     Active Substance: GLYBURIDE
  4. ACTEMRA [Suspect]
     Active Substance: TOCILIZUMAB
     Indication: RHEUMATOID ARTHRITIS
     Route: 042
     Dates: start: 20110321
  5. ACTEMRA [Suspect]
     Active Substance: TOCILIZUMAB
     Route: 042
     Dates: start: 20140910
  6. RAMIPRIL. [Concomitant]
     Active Substance: RAMIPRIL
  7. FOLIC ACID. [Concomitant]
     Active Substance: FOLIC ACID
  8. CELEBREX [Concomitant]
     Active Substance: CELECOXIB
  9. OMEGA 3 [Concomitant]
     Active Substance: OMEGA-3 FATTY ACIDS
  10. METFORMIN [Concomitant]
     Active Substance: METFORMIN HYDROCHLORIDE
  11. ACTEMRA [Suspect]
     Active Substance: TOCILIZUMAB
     Route: 042
     Dates: start: 20140813
  12. VITAMIN C [Concomitant]
     Active Substance: ASCORBIC ACID
  13. CYCLOBENZAPRINE [Suspect]
     Active Substance: CYCLOBENZAPRINE
     Indication: PRODUCT USED FOR UNKNOWN INDICATION
     Route: 065
  14. ACTEMRA [Suspect]
     Active Substance: TOCILIZUMAB
     Route: 042
     Dates: start: 20120704
  15. RABEPRAZOLE [Concomitant]
     Active Substance: RABEPRAZOLE
  16. METHOTREXATE [Concomitant]
     Active Substance: METHOTREXATE
  17. BABY ASA [Concomitant]
     Active Substance: ASPIRIN
  18. CHOLESTYRAMINE. [Concomitant]
     Active Substance: CHOLESTYRAMINE
     Route: 065

REACTIONS (18)
  - Arthralgia [Unknown]
  - Respiratory tract congestion [Not Recovered/Not Resolved]
  - Arthralgia [Recovered/Resolved]
  - Weight decreased [Not Recovered/Not Resolved]
  - Somnolence [Not Recovered/Not Resolved]
  - Haemoglobin decreased [Unknown]
  - Limb injury [Recovered/Resolved]
  - Cough [Not Recovered/Not Resolved]
  - Intervertebral disc degeneration [Unknown]
  - Drug ineffective [Unknown]
  - Fall [Unknown]
  - Pain [Unknown]
  - Back pain [Unknown]
  - Enteritis infectious [Recovered/Resolved]
  - Nasopharyngitis [Recovering/Resolving]
  - Arthralgia [Unknown]
  - Tooth disorder [Recovered/Resolved]
  - Back pain [Not Recovered/Not Resolved]

NARRATIVE: CASE EVENT DATE: 201202
